FAERS Safety Report 7265050-9 (Version None)
Quarter: 2011Q1

REPORT INFORMATION
  Report Type: 
  Country: None (occurrence: None)
  Receive Date: 20110131
  Receipt Date: 20110125
  Transmission Date: 20110831
  Serious: Yes (Death, Hospitalization)
  Sender: FDA-Public Use
  Company Number: US-ASTELLAS-2011US000364

PATIENT

DRUGS (5)
  1. LORTAB [Concomitant]
     Indication: PAIN
     Dosage: 7.5 UNK, PRN
     Route: 048
     Dates: end: 20110124
  2. NEURONTIN [Concomitant]
     Indication: NEUROPATHY PERIPHERAL
     Dosage: UNK
     Route: 065
     Dates: end: 20110124
  3. BLOOD SUGAR MEDICATION [Concomitant]
     Indication: BLOOD GLUCOSE ABNORMAL
     Dosage: UNK
     Dates: end: 20110124
  4. PROGRAF [Suspect]
     Indication: LIVER TRANSPLANT
     Dosage: 2 MG, BID
     Route: 065
     Dates: start: 19940910, end: 20110124
  5. WELLBUTRIN [Concomitant]
     Indication: DEPRESSION
     Dosage: UNK
     Route: 065
     Dates: end: 20110124

REACTIONS (1)
  - HOSPITALISATION [None]
